FAERS Safety Report 25311823 (Version 1)
Quarter: 2025Q2

REPORT INFORMATION
  Report Type: Spontaneous
  Country: IN (occurrence: IN)
  Receive Date: 20250514
  Receipt Date: 20250514
  Transmission Date: 20250716
  Serious: Yes (Hospitalization)
  Sender: MYLAN
  Company Number: IN-MYLANLABS-2025M1040546

PATIENT
  Age: 25 Year
  Sex: Female

DRUGS (88)
  1. PREGABALIN [Suspect]
     Active Substance: PREGABALIN
     Indication: Symptomatic treatment
  2. PREGABALIN [Suspect]
     Active Substance: PREGABALIN
     Route: 065
  3. PREGABALIN [Suspect]
     Active Substance: PREGABALIN
     Route: 065
  4. PREGABALIN [Suspect]
     Active Substance: PREGABALIN
  5. METHYLPREDNISOLONE [Suspect]
     Active Substance: METHYLPREDNISOLONE
     Indication: Symptomatic treatment
  6. METHYLPREDNISOLONE [Suspect]
     Active Substance: METHYLPREDNISOLONE
     Indication: Myelitis transverse
     Route: 042
  7. METHYLPREDNISOLONE [Suspect]
     Active Substance: METHYLPREDNISOLONE
     Route: 042
  8. METHYLPREDNISOLONE [Suspect]
     Active Substance: METHYLPREDNISOLONE
  9. CETIRIZINE [Suspect]
     Active Substance: CETIRIZINE HYDROCHLORIDE
     Indication: Symptomatic treatment
  10. CETIRIZINE [Suspect]
     Active Substance: CETIRIZINE HYDROCHLORIDE
     Route: 065
  11. CETIRIZINE [Suspect]
     Active Substance: CETIRIZINE HYDROCHLORIDE
     Route: 065
  12. CETIRIZINE [Suspect]
     Active Substance: CETIRIZINE HYDROCHLORIDE
  13. CYPROHEPTADINE [Suspect]
     Active Substance: CYPROHEPTADINE
     Indication: Symptomatic treatment
  14. CYPROHEPTADINE [Suspect]
     Active Substance: CYPROHEPTADINE
     Route: 065
  15. CYPROHEPTADINE [Suspect]
     Active Substance: CYPROHEPTADINE
     Route: 065
  16. CYPROHEPTADINE [Suspect]
     Active Substance: CYPROHEPTADINE
  17. DULOXETINE [Suspect]
     Active Substance: DULOXETINE
     Indication: Symptomatic treatment
  18. DULOXETINE [Suspect]
     Active Substance: DULOXETINE
     Route: 065
  19. DULOXETINE [Suspect]
     Active Substance: DULOXETINE
     Route: 065
  20. DULOXETINE [Suspect]
     Active Substance: DULOXETINE
  21. GABAPENTIN [Suspect]
     Active Substance: GABAPENTIN
     Indication: Symptomatic treatment
  22. GABAPENTIN [Suspect]
     Active Substance: GABAPENTIN
     Route: 065
  23. GABAPENTIN [Suspect]
     Active Substance: GABAPENTIN
     Route: 065
  24. GABAPENTIN [Suspect]
     Active Substance: GABAPENTIN
  25. MONTELUKAST [Suspect]
     Active Substance: MONTELUKAST
     Indication: Symptomatic treatment
  26. MONTELUKAST [Suspect]
     Active Substance: MONTELUKAST
     Route: 065
  27. MONTELUKAST [Suspect]
     Active Substance: MONTELUKAST
     Route: 065
  28. MONTELUKAST [Suspect]
     Active Substance: MONTELUKAST
  29. NORTRIPTYLINE [Suspect]
     Active Substance: NORTRIPTYLINE
     Indication: Symptomatic treatment
  30. NORTRIPTYLINE [Suspect]
     Active Substance: NORTRIPTYLINE
     Route: 065
  31. NORTRIPTYLINE [Suspect]
     Active Substance: NORTRIPTYLINE
     Route: 065
  32. NORTRIPTYLINE [Suspect]
     Active Substance: NORTRIPTYLINE
  33. VALPROATE [Suspect]
     Active Substance: VALPROIC ACID
     Indication: Symptomatic treatment
  34. VALPROATE [Suspect]
     Active Substance: VALPROIC ACID
     Route: 065
  35. VALPROATE [Suspect]
     Active Substance: VALPROIC ACID
     Route: 065
  36. VALPROATE [Suspect]
     Active Substance: VALPROIC ACID
  37. CAPREOMYCIN [Concomitant]
     Active Substance: CAPREOMYCIN
     Indication: Pulmonary tuberculosis
  38. CAPREOMYCIN [Concomitant]
     Active Substance: CAPREOMYCIN
     Route: 065
  39. CAPREOMYCIN [Concomitant]
     Active Substance: CAPREOMYCIN
     Route: 065
  40. CAPREOMYCIN [Concomitant]
     Active Substance: CAPREOMYCIN
  41. ISONIAZID [Concomitant]
     Active Substance: ISONIAZID
     Indication: Pulmonary tuberculosis
  42. ISONIAZID [Concomitant]
     Active Substance: ISONIAZID
     Route: 065
  43. ISONIAZID [Concomitant]
     Active Substance: ISONIAZID
     Route: 065
  44. ISONIAZID [Concomitant]
     Active Substance: ISONIAZID
  45. MOXIFLOXACIN [Concomitant]
     Active Substance: MOXIFLOXACIN
     Indication: Pulmonary tuberculosis
  46. MOXIFLOXACIN [Concomitant]
     Active Substance: MOXIFLOXACIN
     Route: 065
  47. MOXIFLOXACIN [Concomitant]
     Active Substance: MOXIFLOXACIN
     Route: 065
  48. MOXIFLOXACIN [Concomitant]
     Active Substance: MOXIFLOXACIN
  49. CLOFAZIMINE [Concomitant]
     Active Substance: CLOFAZIMINE
     Indication: Pulmonary tuberculosis
  50. CLOFAZIMINE [Concomitant]
     Active Substance: CLOFAZIMINE
     Route: 065
  51. CLOFAZIMINE [Concomitant]
     Active Substance: CLOFAZIMINE
     Route: 065
  52. CLOFAZIMINE [Concomitant]
     Active Substance: CLOFAZIMINE
  53. AMOXICILLIN\CLAVULANATE POTASSIUM [Concomitant]
     Active Substance: AMOXICILLIN\CLAVULANATE POTASSIUM
     Indication: Pulmonary tuberculosis
  54. AMOXICILLIN\CLAVULANATE POTASSIUM [Concomitant]
     Active Substance: AMOXICILLIN\CLAVULANATE POTASSIUM
     Route: 065
  55. AMOXICILLIN\CLAVULANATE POTASSIUM [Concomitant]
     Active Substance: AMOXICILLIN\CLAVULANATE POTASSIUM
     Route: 065
  56. AMOXICILLIN\CLAVULANATE POTASSIUM [Concomitant]
     Active Substance: AMOXICILLIN\CLAVULANATE POTASSIUM
  57. CLARITHROMYCIN [Concomitant]
     Active Substance: CLARITHROMYCIN
     Indication: Pulmonary tuberculosis
  58. CLARITHROMYCIN [Concomitant]
     Active Substance: CLARITHROMYCIN
     Route: 065
  59. CLARITHROMYCIN [Concomitant]
     Active Substance: CLARITHROMYCIN
     Route: 065
  60. CLARITHROMYCIN [Concomitant]
     Active Substance: CLARITHROMYCIN
  61. LINEZOLID [Concomitant]
     Active Substance: LINEZOLID
     Indication: Pulmonary tuberculosis
  62. LINEZOLID [Concomitant]
     Active Substance: LINEZOLID
     Route: 065
  63. LINEZOLID [Concomitant]
     Active Substance: LINEZOLID
     Route: 065
  64. LINEZOLID [Concomitant]
     Active Substance: LINEZOLID
  65. AMINOSALICYLIC ACID [Concomitant]
     Active Substance: AMINOSALICYLIC ACID
     Indication: Pulmonary tuberculosis
  66. AMINOSALICYLIC ACID [Concomitant]
     Active Substance: AMINOSALICYLIC ACID
     Route: 065
  67. AMINOSALICYLIC ACID [Concomitant]
     Active Substance: AMINOSALICYLIC ACID
     Route: 065
  68. AMINOSALICYLIC ACID [Concomitant]
     Active Substance: AMINOSALICYLIC ACID
  69. CETIRIZINE [Concomitant]
     Active Substance: CETIRIZINE HYDROCHLORIDE
     Indication: Pruritus
  70. CETIRIZINE [Concomitant]
     Active Substance: CETIRIZINE HYDROCHLORIDE
     Route: 048
  71. CETIRIZINE [Concomitant]
     Active Substance: CETIRIZINE HYDROCHLORIDE
     Route: 048
  72. CETIRIZINE [Concomitant]
     Active Substance: CETIRIZINE HYDROCHLORIDE
  73. GABAPENTIN [Concomitant]
     Active Substance: GABAPENTIN
     Indication: Pruritus
  74. GABAPENTIN [Concomitant]
     Active Substance: GABAPENTIN
     Route: 065
  75. GABAPENTIN [Concomitant]
     Active Substance: GABAPENTIN
     Route: 065
  76. GABAPENTIN [Concomitant]
     Active Substance: GABAPENTIN
  77. AMITRIPTYLINE [Concomitant]
     Active Substance: AMITRIPTYLINE
     Indication: Pruritus
  78. AMITRIPTYLINE [Concomitant]
     Active Substance: AMITRIPTYLINE
     Route: 065
  79. AMITRIPTYLINE [Concomitant]
     Active Substance: AMITRIPTYLINE
     Route: 065
  80. AMITRIPTYLINE [Concomitant]
     Active Substance: AMITRIPTYLINE
  81. RITUXIMAB [Concomitant]
     Active Substance: RITUXIMAB
     Indication: Neuromyelitis optica spectrum disorder
  82. RITUXIMAB [Concomitant]
     Active Substance: RITUXIMAB
     Route: 065
  83. RITUXIMAB [Concomitant]
     Active Substance: RITUXIMAB
     Route: 065
  84. RITUXIMAB [Concomitant]
     Active Substance: RITUXIMAB
  85. AZATHIOPRINE [Concomitant]
     Active Substance: AZATHIOPRINE
     Indication: Neuromyelitis optica spectrum disorder
  86. AZATHIOPRINE [Concomitant]
     Active Substance: AZATHIOPRINE
     Route: 048
  87. AZATHIOPRINE [Concomitant]
     Active Substance: AZATHIOPRINE
     Route: 048
  88. AZATHIOPRINE [Concomitant]
     Active Substance: AZATHIOPRINE

REACTIONS (1)
  - Drug ineffective [Unknown]
